FAERS Safety Report 5067515-7 (Version None)
Quarter: 2006Q3

REPORT INFORMATION
  Report Type: 
  Country: None (occurrence: None)
  Receive Date: 20060802
  Receipt Date: 20060603
  Transmission Date: 20061208
  Serious: Yes (Hospitalization)
  Sender: FDA-Public Use
  Company Number: JP-BAYER-200610861BYL

PATIENT
  Age: 72 Year
  Sex: Male
  Weight: 75 kg

DRUGS (10)
  1. ASPIRIN [Suspect]
     Indication: POSTINFARCTION ANGINA
     Dosage: TOTAL DAILY DOSE: 100 MG  UNIT DOSE: 100 MG
     Route: 048
     Dates: start: 20050630, end: 20050829
  2. PANALDINE [Suspect]
     Indication: POSTINFARCTION ANGINA
     Dosage: TOTAL DAILY DOSE: 200 MG  UNIT DOSE: 100 MG
     Route: 048
     Dates: start: 20050630, end: 20050815
  3. ISOSORBIDE MONONITRATE [Suspect]
     Indication: POSTINFARCTION ANGINA
     Dosage: TOTAL DAILY DOSE: 40 MG  UNIT DOSE: 20 MG
     Route: 048
     Dates: start: 20050630, end: 20050901
  4. NU-LOTAN [Suspect]
     Indication: HYPERTENSION
     Dosage: TOTAL DAILY DOSE: 50 MG  UNIT DOSE: 50 MG
     Route: 048
     Dates: start: 20050701, end: 20050824
  5. NORVASC [Suspect]
     Indication: HYPERTENSION
     Dosage: TOTAL DAILY DOSE: 5 MG  UNIT DOSE: 5 MG
     Route: 048
     Dates: start: 20050701, end: 20050901
  6. BASEN [Suspect]
     Indication: DIABETES MELLITUS
     Dosage: TOTAL DAILY DOSE: 0.6 MG  UNIT DOSE: 0.6 MG
     Route: 048
     Dates: start: 20050701, end: 20050705
  7. BASEN [Suspect]
     Dosage: TOTAL DAILY DOSE: 0.9 MG  UNIT DOSE: 0.9 MG
     Route: 048
     Dates: start: 20050706, end: 20050815
  8. AMARYL [Suspect]
     Indication: DIABETES MELLITUS
     Dosage: TOTAL DAILY DOSE: 2 MG  UNIT DOSE: 2 MG
     Route: 048
     Dates: start: 20050706, end: 20050711
  9. AMARYL [Suspect]
     Dosage: TOTAL DAILY DOSE: 2.5 MG  UNIT DOSE: 2.5 MG
     Route: 048
     Dates: start: 20050712, end: 20050727
  10. AMARYL [Suspect]
     Dosage: TOTAL DAILY DOSE: 3 MG  UNIT DOSE: 3 MG
     Route: 048
     Dates: start: 20050728, end: 20050815

REACTIONS (1)
  - LIVER DISORDER [None]
